FAERS Safety Report 11813153 (Version 1)
Quarter: 2015Q4

REPORT INFORMATION
  Report Type: Spontaneous
  Country: US (occurrence: None)
  Receive Date: 20151207
  Receipt Date: 20151207
  Transmission Date: 20160305
  Serious: Yes (Hospitalization)
  Sender: FDA-Public Use
  Company Number: RAP-001022-2013

PATIENT
  Age: 18 Year
  Sex: Female
  Weight: 60.8 kg

DRUGS (5)
  1. ACETAMINOPHEN (ACETAMINOPHEN) [Concomitant]
     Active Substance: ACETAMINOPHEN
  2. VITAMIN D [Concomitant]
     Active Substance: CHOLECALCIFEROL
  3. CALCIUM (CALCIUM) [Concomitant]
     Active Substance: CALCIUM
  4. CYSTEAMINE [Suspect]
     Active Substance: CYSTEAMINE
     Indication: CYSTINOSIS
     Dosage: 375 (IN THE MORNING)/300 (IN THE EVENING) MG, ORAL
     Route: 048
     Dates: start: 20101008
  5. POTASSIUM CHLORIDE (POTASSIUM CHLORIDE) [Concomitant]
     Active Substance: POTASSIUM CHLORIDE

REACTIONS (8)
  - Cold sweat [None]
  - Knee deformity [None]
  - Headache [None]
  - Dizziness [None]
  - Electrocardiogram QT prolonged [None]
  - Nausea [None]
  - Flushing [None]
  - Procedural pain [None]

NARRATIVE: CASE EVENT DATE: 20130320
